FAERS Safety Report 7872282-5 (Version None)
Quarter: 2011Q4

REPORT INFORMATION
  Report Type: 
  Country: None (occurrence: None)
  Receive Date: 20111029
  Receipt Date: 20110316
  Transmission Date: 20120403
  Serious: No
  Sender: FDA-Public Use
  Company Number: US-AMGEN-USASP2011014556

PATIENT
  Age: 52 Year
  Sex: Male

DRUGS (2)
  1. ENBREL [Suspect]
     Indication: ANKYLOSING SPONDYLITIS
     Dosage: 50 MG, QWK
     Dates: start: 20080101
  2. ENBREL [Suspect]
     Dates: start: 20080101

REACTIONS (5)
  - MUSCLE SPASMS [None]
  - RASH ERYTHEMATOUS [None]
  - MEMORY IMPAIRMENT [None]
  - RASH PRURITIC [None]
  - BACK DISORDER [None]
